FAERS Safety Report 25200375 (Version 2)
Quarter: 2025Q3

REPORT INFORMATION
  Report Type: Spontaneous
  Country: US (occurrence: US)
  Receive Date: 20250415
  Receipt Date: 20250811
  Transmission Date: 20251020
  Serious: No
  Sender: SANOFI AVENTIS
  Company Number: US-SA-2025SA108402

PATIENT
  Age: 14 Year
  Sex: Male
  Weight: 72.14 kg

DRUGS (2)
  1. DUPIXENT [Suspect]
     Active Substance: DUPILUMAB
     Indication: Dermatitis atopic
     Dosage: 300 MG, QOW
     Route: 058
  2. DESMOPRESSIN ACETATE [Concomitant]
     Active Substance: DESMOPRESSIN ACETATE

REACTIONS (3)
  - Injection site pain [Unknown]
  - Product preparation error [Unknown]
  - Product storage error [Unknown]

NARRATIVE: CASE EVENT DATE: 20250410
